FAERS Safety Report 4492058-9 (Version None)
Quarter: 2004Q4

REPORT INFORMATION
  Report Type: 
  Country: None (occurrence: None)
  Receive Date: 20041101
  Receipt Date: 20041018
  Transmission Date: 20050328
  Serious: Yes (Hospitalization)
  Sender: FDA-Public Use
  Company Number: HQWYE003922OCT04

PATIENT
  Age: 44 Year
  Sex: Male

DRUGS (2)
  1. RHINADVIL (IBUPROFEN/PSEUDOEPHEDRINE, TABLET) [Suspect]
     Indication: RHINITIS
     Dosage: 6 TABS DAILY , ORAL
     Route: 048
     Dates: start: 20040917, end: 20040925
  2. ZOLMITRIPTAN (ZOLMITRIPTAN) [Concomitant]

REACTIONS (8)
  - CONDITION AGGRAVATED [None]
  - FACIAL PARESIS [None]
  - HEMIPARESIS [None]
  - MOVEMENT DISORDER [None]
  - NUCLEAR MAGNETIC RESONANCE IMAGING ABNORMAL [None]
  - PHOTOPHOBIA [None]
  - VERTIGO [None]
  - VISUAL DISTURBANCE [None]
